FAERS Safety Report 6220739-5 (Version None)
Quarter: 2009Q2

REPORT INFORMATION
  Report Type: 
  Country: None (occurrence: None)
  Receive Date: 20090610
  Receipt Date: 20090602
  Transmission Date: 20091009
  Serious: Yes (Other)
  Sender: FDA-Public Use
  Company Number: PHEH2009US04004

PATIENT
  Sex: Male

DRUGS (17)
  1. TASIGNA [Suspect]
     Indication: CHRONIC MYELOID LEUKAEMIA
     Dosage: 400 MG, QD
     Route: 048
     Dates: start: 20090318, end: 20090326
  2. DIOVAN [Concomitant]
  3. LEVAQUIN [Concomitant]
  4. FLOMAX [Concomitant]
  5. TOPROL-XL [Concomitant]
  6. NEURONTIN [Concomitant]
  7. AMBIEN [Concomitant]
  8. GLYSET [Concomitant]
  9. HUMULIN R [Concomitant]
  10. LEXAPRO [Concomitant]
  11. LASIX [Concomitant]
  12. ZETIA [Concomitant]
  13. LANOXIN [Concomitant]
  14. GLUCOTROL XL [Concomitant]
  15. COUMADIN [Concomitant]
  16. AMBIEN [Concomitant]
  17. INSULIN [Concomitant]

REACTIONS (1)
  - ELECTROCARDIOGRAM QT PROLONGED [None]
